FAERS Safety Report 9922295 (Version 1)
Quarter: 2014Q1

REPORT INFORMATION
  Report Type: Spontaneous
  Country: US (occurrence: None)
  Receive Date: 20140224
  Receipt Date: 20140224
  Transmission Date: 20141002
  Serious: Yes (Disabling)
  Sender: FDA-Public Use
  Company Number: None

PATIENT
  Age: 65 Year
  Sex: Female
  Weight: 72.58 kg

DRUGS (3)
  1. ESTRING [Suspect]
     Dosage: ONE RING, EVERY 90 DAYS, IN VAGINA
     Route: 067
     Dates: start: 20120110, end: 20121225
  2. CALCIUM [Concomitant]
  3. FISH OIL [Concomitant]

REACTIONS (4)
  - Chest pain [None]
  - Dyspnoea [None]
  - Hypopnoea [None]
  - Dyspnoea exertional [None]
